FAERS Safety Report 17694339 (Version 4)
Quarter: 2020Q2

REPORT INFORMATION
  Report Type: Spontaneous
  Country: PL (occurrence: PL)
  Receive Date: 20200422
  Receipt Date: 20200519
  Transmission Date: 20200714
  Serious: Yes (Other)
  Sender: FDA-Public Use
  Company Number: PL-JNJFOC-20200418387

PATIENT
  Age: 61 Year
  Sex: Male

DRUGS (15)
  1. IRON [Concomitant]
     Active Substance: IRON
     Indication: PRODUCT USED FOR UNKNOWN INDICATION
     Dosage: UNK
     Route: 065
  2. DICLOFENAC [Concomitant]
     Active Substance: DICLOFENAC
     Indication: PRODUCT USED FOR UNKNOWN INDICATION
     Route: 065
  3. FENTANYL. [Concomitant]
     Active Substance: FENTANYL
     Indication: CANCER PAIN
     Dosage: 3-4 TIMES A DAY
     Route: 065
  4. FENTANYL. [Suspect]
     Active Substance: FENTANYL
     Indication: CANCER PAIN
     Dosage: 3-4 TIMES A DAY
     Route: 002
  5. MORPHINE [Concomitant]
     Active Substance: MORPHINE
     Indication: CANCER PAIN
     Dosage: 0.02 GRAM; IMMEDIATE-RELEASE
     Route: 048
  6. BICALUTAMIDE. [Concomitant]
     Active Substance: BICALUTAMIDE
     Indication: PRODUCT USED FOR UNKNOWN INDICATION
     Route: 065
  7. KETOPROFEN. [Concomitant]
     Active Substance: KETOPROFEN
     Indication: PRODUCT USED FOR UNKNOWN INDICATION
     Route: 065
  8. DUROGESIC [Suspect]
     Active Substance: FENTANYL
     Indication: CANCER PAIN
     Dosage: 50 MICROGRAM, Q72H
     Route: 062
     Dates: start: 2016, end: 2016
  9. GABAPENTIN. [Concomitant]
     Active Substance: GABAPENTIN
     Indication: PRODUCT USED FOR UNKNOWN INDICATION
     Dosage: UNK
     Route: 065
  10. LEUPRORELIN                        /00726902/ [Concomitant]
     Active Substance: LEUPROLIDE ACETATE
     Indication: HORMONE THERAPY
     Route: 065
  11. TRAMADOL. [Concomitant]
     Active Substance: TRAMADOL
     Indication: PRODUCT USED FOR UNKNOWN INDICATION
     Route: 065
  12. TRAMADOL/PARACETAMOL [Concomitant]
     Active Substance: ACETAMINOPHEN\TRAMADOL
     Indication: PRODUCT USED FOR UNKNOWN INDICATION
     Route: 065
  13. DUROGESIC [Suspect]
     Active Substance: FENTANYL
     Dosage: 50 MICROGRAM, Q72H
     Route: 062
     Dates: start: 2016, end: 2016
  14. DENOSUMAB [Concomitant]
     Active Substance: DENOSUMAB
     Indication: PRODUCT USED FOR UNKNOWN INDICATION
     Dosage: UNK
     Route: 058
  15. VITAMIN D3 [Concomitant]
     Active Substance: CHOLECALCIFEROL
     Indication: PRODUCT USED FOR UNKNOWN INDICATION
     Dosage: UNK
     Route: 065

REACTIONS (1)
  - Hyperaesthesia [Recovered/Resolved]

NARRATIVE: CASE EVENT DATE: 201612
